FAERS Safety Report 25745850 (Version 1)
Quarter: 2025Q3

REPORT INFORMATION
  Report Type: Spontaneous
  Country: US (occurrence: US)
  Receive Date: 20250901
  Receipt Date: 20250901
  Transmission Date: 20251020
  Serious: Yes (Life-Threatening, Hospitalization, Other)
  Sender: STRIDES
  Company Number: US-STRIDES ARCOLAB LIMITED-2025SP011075

PATIENT
  Age: 57 Year
  Sex: Female

DRUGS (1)
  1. AMLODIPINE [Suspect]
     Active Substance: AMLODIPINE BESYLATE
     Indication: Product used for unknown indication
     Route: 065

REACTIONS (8)
  - Non-cardiogenic pulmonary oedema [Recovering/Resolving]
  - Suicide attempt [Unknown]
  - Respiratory failure [Recovering/Resolving]
  - Tachypnoea [Recovering/Resolving]
  - Tachycardia [Recovering/Resolving]
  - Hyperglycaemia [Recovering/Resolving]
  - Hypotension [Recovering/Resolving]
  - Intentional overdose [Unknown]
